FAERS Safety Report 7817738-6 (Version None)
Quarter: 2011Q4

REPORT INFORMATION
  Report Type: 
  Country: None (occurrence: None)
  Receive Date: 20111017
  Receipt Date: 20111010
  Transmission Date: 20120403
  Serious: Yes (Hospitalization, Other)
  Sender: FDA-Public Use
  Company Number: US-JNJFOC-20110509502

PATIENT
  Sex: Female

DRUGS (3)
  1. LEVAQUIN [Suspect]
     Indication: PRODUCT USED FOR UNKNOWN INDICATION
     Route: 048
  2. PERCOCET [Concomitant]
     Indication: PAIN
  3. LEVAQUIN [Suspect]
     Indication: INFECTION
     Route: 042

REACTIONS (4)
  - TENDON RUPTURE [None]
  - TENOSYNOVITIS [None]
  - TENDON DISORDER [None]
  - ROTATOR CUFF SYNDROME [None]
